FAERS Safety Report 9168882 (Version 1)
Quarter: 2013Q1

REPORT INFORMATION
  Report Type: Spontaneous
  Country: US (occurrence: US)
  Receive Date: 20130318
  Receipt Date: 20130318
  Transmission Date: 20140127
  Serious: No
  Sender: FDA-Public Use
  Company Number: US-PFIZER INC-2013086711

PATIENT
  Age: 47 Year
  Sex: Male
  Weight: 95.24 kg

DRUGS (4)
  1. LYRICA [Suspect]
     Indication: NEURALGIA
     Dosage: 75 MG, 4X/DAY
     Route: 048
  2. LYRICA [Suspect]
     Dosage: 75 MG, 2X/DAY
     Route: 048
  3. LISINOPRIL [Suspect]
     Indication: HYPERTENSION
     Dosage: UNK
  4. ALLOPURINOL [Concomitant]
     Dosage: UNK

REACTIONS (2)
  - Weight increased [Not Recovered/Not Resolved]
  - Blood cholesterol increased [Unknown]
